FAERS Safety Report 8093733-X (Version None)
Quarter: 2012Q1

REPORT INFORMATION
  Report Type: 
  Country: None (occurrence: None)
  Receive Date: 20120129
  Receipt Date: 20111018
  Transmission Date: 20120608
  Serious: No
  Sender: FDA-Public Use
  Company Number: US-ABBOTT-11P-163-0865786-00

PATIENT
  Sex: Female
  Weight: 99.88 kg

DRUGS (6)
  1. UNNAMED MEDICATION [Concomitant]
     Indication: FIBROMYALGIA
  2. HUMIRA [Suspect]
     Indication: PSORIATIC ARTHROPATHY
     Dates: end: 20111001
  3. FOLIC ACID [Concomitant]
     Indication: VITAMIN SUPPLEMENTATION
  4. UNNAMED ALLERGY MEDICATION [Concomitant]
     Indication: HYPERSENSITIVITY
  5. HUMIRA [Suspect]
  6. UNNAMED MEDICATION [Concomitant]
     Indication: PAIN

REACTIONS (5)
  - MYALGIA [None]
  - GAIT DISTURBANCE [None]
  - JOINT EFFUSION [None]
  - MOBILITY DECREASED [None]
  - DRUG INEFFECTIVE [None]
